FAERS Safety Report 10914731 (Version 1)
Quarter: 2015Q1

REPORT INFORMATION
  Report Type: Spontaneous
  Country: PT (occurrence: PT)
  Receive Date: 20150313
  Receipt Date: 20150313
  Transmission Date: 20150721
  Serious: Yes (Other)
  Sender: FDA-Public Use
  Company Number: PHHY2015PT029844

PATIENT
  Age: 36 Year
  Sex: Female

DRUGS (4)
  1. ACETYLSALICYLIC ACID [Suspect]
     Active Substance: ASPIRIN
     Dosage: 100 MG, QD MAINTAINANCE DOSE
     Route: 048
  2. ACETYLSALICYLIC ACID [Suspect]
     Active Substance: ASPIRIN
     Indication: PROPHYLAXIS OF ABORTION
     Dosage: 17.5 MG, QD ON DAY 1
     Route: 048
  3. ACETYLSALICYLIC ACID [Suspect]
     Active Substance: ASPIRIN
     Indication: IMMUNE TOLERANCE INDUCTION
     Dosage: 70 MG, QD ON DAY 2
     Route: 048
  4. ACETYLSALICYLIC ACID [Suspect]
     Active Substance: ASPIRIN
     Dosage: 50 MG, BID ON DAY 3
     Route: 048

REACTIONS (6)
  - Conjunctival hyperaemia [Unknown]
  - Rash pruritic [Unknown]
  - Dyspnoea [Unknown]
  - Angioedema [Unknown]
  - Type I hypersensitivity [Unknown]
  - Eyelid oedema [Unknown]
